FAERS Safety Report 9805340 (Version 1)
Quarter: 2014Q1

REPORT INFORMATION
  Report Type: Spontaneous
  Country: US (occurrence: None)
  Receive Date: 20140108
  Receipt Date: 20140108
  Transmission Date: 20141002
  Serious: Yes (Other)
  Sender: FDA-Public Use
  Company Number: None

PATIENT
  Age: 42 Year
  Sex: Female
  Weight: 108.86 kg

DRUGS (1)
  1. LISINOPRIL 5MG [Suspect]
     Indication: HYPERTENSION
     Route: 048
     Dates: start: 201308, end: 201312

REACTIONS (3)
  - Productive cough [None]
  - Vomiting [None]
  - Respiratory tract congestion [None]
